FAERS Safety Report 4962436-X (Version None)
Quarter: 2006Q2

REPORT INFORMATION
  Report Type: 
  Country: None (occurrence: None)
  Receive Date: 20060404
  Receipt Date: 20060124
  Transmission Date: 20061013
  Serious: Yes (Hospitalization)
  Sender: FDA-Public Use
  Company Number: ES-BRISTOL-MYERS SQUIBB COMPANY-13335088

PATIENT
  Age: 73 Year
  Sex: Female

DRUGS (8)
  1. TRAZODONE HCL [Suspect]
     Indication: DEPRESSION
     Route: 048
     Dates: start: 20051017, end: 20051019
  2. TRAMADOL HCL [Suspect]
     Route: 048
     Dates: start: 20040101, end: 20051019
  3. OMEPRAZOLE [Suspect]
     Route: 048
     Dates: start: 20040101, end: 20051019
  4. ZOLPIDEM TARTRATE [Suspect]
     Indication: SLEEP APNOEA SYNDROME
     Route: 048
     Dates: start: 19950101, end: 20051019
  5. ZOLPIDEM TARTRATE [Suspect]
     Indication: INSOMNIA
     Route: 048
     Dates: start: 19950101, end: 20051019
  6. FLUOXETINE HCL [Suspect]
     Indication: DEPRESSION
     Route: 048
     Dates: start: 19950101, end: 20051019
  7. TRANXILIUM [Suspect]
     Route: 048
     Dates: start: 19950101, end: 20051019
  8. INSULIN [Concomitant]

REACTIONS (1)
  - DERMATITIS EXFOLIATIVE [None]
